FAERS Safety Report 23445875 (Version 1)
Quarter: 2024Q1

REPORT INFORMATION
  Report Type: Other
  Country: PE (occurrence: None)
  Receive Date: 20240126
  Receipt Date: 20240126
  Transmission Date: 20240410
  Serious: Yes (Disabling, Other)
  Sender: FDA-Public Use
  Company Number: PE-ROCHE-3449183

PATIENT
  Age: 49 Year
  Sex: Female

DRUGS (7)
  1. ACTEMRA [Suspect]
     Active Substance: TOCILIZUMAB
     Indication: Rheumatoid arthritis
     Dosage: 1 AMPOULE WEEKLY
     Route: 058
     Dates: start: 202309
  2. ACTEMRA [Suspect]
     Active Substance: TOCILIZUMAB
     Dosage: 1 AMPOULE WEEKLY
     Route: 058
     Dates: start: 20231003
  3. DEXKETOPROFEN TROMETAMOL [Concomitant]
     Active Substance: DEXKETOPROFEN TROMETAMOL
     Dosage: FORM OF ADMIN -DEXKETOPROFEN 2 TIMES
  4. LEFLUNOMIDE [Concomitant]
     Active Substance: LEFLUNOMIDE
     Dosage: FORM OF ADMIN- COATED TABLET, ONE TABLET BY MOUTH FOR 30 DAYS EVERY 24 HOURS
     Route: 048
  5. DEFLAZACORT [Concomitant]
     Active Substance: DEFLAZACORT
     Dosage: A TABLET FOR 7 DAYS OR 8 DAYS, EXCEPT SATURDAYS, HALF TABLET
     Route: 048
  6. DEFLAZACORT [Concomitant]
     Active Substance: DEFLAZACORT
     Dosage: ONE TABLET BY MOUTH FOR 20 DAYS EVERY 24 HOURS
     Route: 048
  7. CALCIUM CITRATE;VITAMIN D3 [Concomitant]
     Dosage: CALCIUM CITRATE 1500 MG + VITAMIN D3 800IU TABLET, ONE TABLET BY MOUTH FOR 30 DAYS EVERY 24 HOURS.
     Route: 048

REACTIONS (6)
  - Fall [Unknown]
  - Lower limb fracture [Unknown]
  - Upper limb fracture [Unknown]
  - Bone disorder [Unknown]
  - Injection site haemorrhage [Unknown]
  - Dry eye [Unknown]
